FAERS Safety Report 9643410 (Version 2)
Quarter: 2013Q4

REPORT INFORMATION
  Report Type: Spontaneous
  Country: GB (occurrence: GB)
  Receive Date: 20131024
  Receipt Date: 20131024
  Transmission Date: 20140711
  Serious: Yes (Hospitalization)
  Sender: FDA-Public Use
  Company Number: GB-ABBVIE-13P-167-1092994-00

PATIENT
  Age: 31 Year
  Sex: Male
  Weight: 84 kg

DRUGS (5)
  1. HUMIRA [Suspect]
     Indication: CROHN^S DISEASE
     Route: 058
  2. AZATHIOPRINE [Concomitant]
     Indication: CROHN^S DISEASE
     Route: 048
  3. AZATHIOPRINE [Concomitant]
     Indication: COLITIS
  4. ASACOL [Concomitant]
     Indication: CROHN^S DISEASE
     Route: 048
  5. ASACOL [Concomitant]
     Indication: COLITIS

REACTIONS (2)
  - Cerebral cyst [Recovering/Resolving]
  - Vomiting [Recovering/Resolving]
